FAERS Safety Report 8105671 (Version 4)
Quarter: 2013Q4

REPORT INFORMATION
  Report Type: Spontaneous
  Country: US (occurrence: US)
  Receive Date: 20110825
  Receipt Date: 20131120
  Transmission Date: 20140711
  Serious: Yes (Hospitalization)
  Sender: FDA-Public Use
  Company Number: US-BAYER-2011-075751

PATIENT
  Age: 19 Year
  Sex: Female
  Weight: 84.81 kg

DRUGS (8)
  1. YAZ [Suspect]
     Dosage: UNK
     Route: 048
     Dates: start: 20051118, end: 2010
  2. YASMIN [Suspect]
     Dosage: UNK
     Route: 048
     Dates: start: 20051118, end: 20071127
  3. YASMIN [Suspect]
     Dosage: UNK
     Route: 048
     Dates: end: 2010
  4. PROTONIX [Concomitant]
  5. PEPCID [Concomitant]
  6. VICODIN [Concomitant]
  7. DARVOCET-N [Concomitant]
     Dosage: UNK UNK, PRN
  8. DOXYCLINE [Concomitant]

REACTIONS (3)
  - Pancreatitis acute [Recovering/Resolving]
  - Cholecystitis chronic [None]
  - Pain [Recovering/Resolving]
